FAERS Safety Report 20631888 (Version 2)
Quarter: 2022Q1

REPORT INFORMATION
  Report Type: Spontaneous
  Country: US (occurrence: US)
  Receive Date: 20220324
  Receipt Date: 20220330
  Transmission Date: 20220423
  Serious: No
  Sender: FDA-Public Use
  Company Number: US-PFIZER INC-202200397994

PATIENT
  Age: 47 Year
  Sex: Female

DRUGS (1)
  1. PAXLOVID [Suspect]
     Active Substance: NIRMATRELVIR\RITONAVIR
     Indication: SARS-CoV-2 test negative
     Dosage: (PF-07321332 300 MG)/(RITONAVIR 100 MG); 2X/DAY

REACTIONS (2)
  - Therapeutic response unexpected [Unknown]
  - Off label use [Unknown]
